FAERS Safety Report 11009552 (Version 4)
Quarter: 2015Q2

REPORT INFORMATION
  Report Type: Spontaneous
  Country: SE (occurrence: SE)
  Receive Date: 20150410
  Receipt Date: 20150508
  Transmission Date: 20150821
  Serious: Yes (Hospitalization, Other)
  Sender: FDA-Public Use
  Company Number: SE-009507513-1504SWE001579

PATIENT
  Sex: Female
  Weight: 34 kg

DRUGS (2)
  1. IVERMECTIN. [Suspect]
     Active Substance: IVERMECTIN
     Dosage: UNK, QM
     Route: 048
     Dates: end: 2011
  2. IVERMECTIN. [Suspect]
     Active Substance: IVERMECTIN
     Indication: INFECTION PARASITIC
     Dosage: EVERY 2 MONTHS
     Route: 048
     Dates: start: 1988

REACTIONS (6)
  - Infection parasitic [Not Recovered/Not Resolved]
  - Drug ineffective [Unknown]
  - Blindness [Not Recovered/Not Resolved]
  - Eye disorder [Recovered/Resolved]
  - Drug resistance [Unknown]
  - Drug effect decreased [Not Recovered/Not Resolved]

NARRATIVE: CASE EVENT DATE: 2011
